FAERS Safety Report 18713695 (Version 2)
Quarter: 2021Q1

REPORT INFORMATION
  Report Type: Report from Study
  Country: US (occurrence: US)
  Receive Date: 20210107
  Receipt Date: 20210108
  Transmission Date: 20210419
  Serious: Yes (Other)
  Sender: FDA-Public Use
  Company Number: US-IGSA-BIG0012704

PATIENT
  Age: 56 Year
  Sex: Male
  Weight: 86 kg

DRUGS (7)
  1. CHANTIX [Concomitant]
     Active Substance: VARENICLINE TARTRATE
  2. CYMBALTA [Concomitant]
     Active Substance: DULOXETINE HYDROCHLORIDE
  3. PROLASTIN?C LIQUID [Suspect]
     Active Substance: .ALPHA.1-PROTEINASE INHIBITOR HUMAN
     Indication: ALPHA-1 ANTITRYPSIN DEFICIENCY
     Dosage: 5160 MILLIGRAM, Q.WK.
     Route: 042
     Dates: start: 20201124, end: 20201222
  4. PROLASTIN?C LIQUID [Suspect]
     Active Substance: .ALPHA.1-PROTEINASE INHIBITOR HUMAN
     Dosage: 5160 MILLIGRAM, Q.WK.
     Route: 042
     Dates: start: 201905, end: 20201222
  5. PROLASTIN?C LIQUID [Suspect]
     Active Substance: .ALPHA.1-PROTEINASE INHIBITOR HUMAN
     Dosage: 5160 MILLIGRAM, Q.WK.
     Route: 042
     Dates: start: 20201222, end: 20201222
  6. ADVIL [Concomitant]
     Active Substance: IBUPROFEN
  7. CELEBREX [Concomitant]
     Active Substance: CELECOXIB

REACTIONS (5)
  - Loss of consciousness [Recovered/Resolved]
  - Cough [Recovered/Resolved]
  - Dyspnoea [Not Recovered/Not Resolved]
  - Apnoea [Recovered/Resolved]
  - Intentional dose omission [Recovered/Resolved]

NARRATIVE: CASE EVENT DATE: 20201124
